FAERS Safety Report 19776641 (Version 2)
Quarter: 2021Q3

REPORT INFORMATION
  Report Type: Spontaneous
  Country: JP (occurrence: JP)
  Receive Date: 20210902
  Receipt Date: 20210922
  Transmission Date: 20211014
  Serious: Yes (Other)
  Sender: FDA-Public Use
  Company Number: JP-SUN PHARMACEUTICAL INDUSTRIES LTD-2021R1-309113

PATIENT
  Age: 69 Year
  Sex: Male

DRUGS (2)
  1. AMANTADINE HYDROCHLORIDE NICHIIKO [Suspect]
     Active Substance: AMANTADINE HYDROCHLORIDE
     Indication: PRODUCT USED FOR UNKNOWN INDICATION
     Dosage: UNK
     Route: 065
  2. SPIRONOLACTONE. [Suspect]
     Active Substance: SPIRONOLACTONE
     Indication: PRODUCT USED FOR UNKNOWN INDICATION
     Dosage: UNK,INCREASE
     Route: 065

REACTIONS (7)
  - Drug level increased [Unknown]
  - Dehydration [Unknown]
  - Renal impairment [Unknown]
  - Overdose [Unknown]
  - Dyskinesia [Unknown]
  - Toxicity to various agents [Unknown]
  - Acute kidney injury [Unknown]
